FAERS Safety Report 4530732-6 (Version None)
Quarter: 2004Q4

REPORT INFORMATION
  Report Type: 
  Country: None (occurrence: None)
  Receive Date: 20041217
  Receipt Date: 20041214
  Transmission Date: 20050328
  Serious: Yes (Other)
  Sender: FDA-Public Use
  Company Number: BE-GLAXOSMITHKLINE-B0361897A

PATIENT
  Age: 59 Year
  Sex: Male

DRUGS (1)
  1. NARAMIG [Suspect]
     Indication: DRUG USE FOR UNKNOWN INDICATION
     Dosage: 2.5MG PER DAY

REACTIONS (1)
  - CORONARY ARTERY STENOSIS [None]
